FAERS Safety Report 18820419 (Version 1)
Quarter: 2021Q1

REPORT INFORMATION
  Report Type: Spontaneous
  Country: US (occurrence: US)
  Receive Date: 20210201
  Receipt Date: 20210201
  Transmission Date: 20210419
  Serious: Yes (Hospitalization)
  Sender: FDA-Public Use
  Company Number: None

PATIENT
  Age: 61 Year
  Sex: Male

DRUGS (14)
  1. ELIQUIS [Concomitant]
     Active Substance: APIXABAN
  2. ZOFRAN [Concomitant]
     Active Substance: ONDANSETRON HYDROCHLORIDE
  3. CALCIUM [Concomitant]
     Active Substance: CALCIUM
  4. LEVOTHRYROXIN [Concomitant]
  5. MUCINEX [Concomitant]
     Active Substance: GUAIFENESIN
  6. FUROSEMIDE. [Concomitant]
     Active Substance: FUROSEMIDE
  7. VITAMIN D3 [Concomitant]
     Active Substance: CHOLECALCIFEROL
  8. ESBRIET [Suspect]
     Active Substance: PIRFENIDONE
     Indication: IDIOPATHIC PULMONARY FIBROSIS
     Route: 048
     Dates: start: 20180518
  9. AUGMENTIN [Concomitant]
     Active Substance: AMOXICILLIN\CLAVULANATE POTASSIUM
  10. ENSURE [Concomitant]
     Active Substance: AMINO ACIDS\DEXTROSE\ELECTROLYTES NOS\SOYBEAN OIL\VITAMINS
  11. FLONAKSE [Concomitant]
  12. OMEPRAZOLE. [Concomitant]
     Active Substance: OMEPRAZOLE
  13. VIT D [Concomitant]
     Active Substance: VITAMIN D NOS
  14. ASPIRIN. [Concomitant]
     Active Substance: ASPIRIN

REACTIONS (2)
  - Thrombosis [None]
  - Idiopathic pulmonary fibrosis [None]
